FAERS Safety Report 6110243-7 (Version None)
Quarter: 2009Q1

REPORT INFORMATION
  Report Type: 
  Country: None (occurrence: None)
  Receive Date: 20090309
  Receipt Date: 20090309
  Transmission Date: 20090719
  Serious: Yes (Other)
  Sender: FDA-Public Use
  Company Number: None

PATIENT
  Age: 55 Year
  Sex: Female
  Weight: 63.5036 kg

DRUGS (1)
  1. ACTONEL [Suspect]
     Indication: OSTEOPENIA
     Dosage: 150MG ONCE MONTHLY PO
     Route: 048
     Dates: start: 20081221, end: 20090121

REACTIONS (11)
  - ABASIA [None]
  - ARTHRALGIA [None]
  - CHEST PAIN [None]
  - ERUCTATION [None]
  - GASTROINTESTINAL DISORDER [None]
  - INFLUENZA LIKE ILLNESS [None]
  - MIGRAINE [None]
  - MUSCLE SPASMS [None]
  - PYREXIA [None]
  - RASH [None]
  - UVEITIS [None]
